FAERS Safety Report 6336856-5 (Version None)
Quarter: 2009Q3

REPORT INFORMATION
  Report Type: 
  Country: None (occurrence: None)
  Receive Date: 20090901
  Receipt Date: 20090820
  Transmission Date: 20100115
  Serious: Yes (Hospitalization)
  Sender: FDA-Public Use
  Company Number: FR-WYE-H10706909

PATIENT
  Sex: Female

DRUGS (10)
  1. INIPOMP [Suspect]
     Route: 048
     Dates: end: 20090722
  2. SIFROL [Suspect]
     Indication: RESTLESS LEGS SYNDROME
     Route: 048
     Dates: end: 20090722
  3. EFFERALGAN CODEINE [Suspect]
     Route: 048
     Dates: end: 20090722
  4. FORLAX [Concomitant]
     Dosage: UNKNOWN
  5. LEVOTHYROXINE SODIUM [Concomitant]
     Route: 048
  6. TAREG [Suspect]
     Route: 048
     Dates: end: 20090722
  7. SPIRIVA [Concomitant]
     Dosage: UNKNOWN
  8. BUDESONIDE [Concomitant]
     Dosage: UNKNOWN
  9. EUPRESSYL [Suspect]
     Indication: HYPERTENSION
     Route: 048
     Dates: end: 20090722
  10. TAHOR [Suspect]
     Indication: HYPERCHOLESTEROLAEMIA
     Route: 048
     Dates: end: 20090722

REACTIONS (5)
  - HEADACHE [None]
  - HYPONATRAEMIA [None]
  - HYPOTENSION [None]
  - MENTAL IMPAIRMENT [None]
  - NAUSEA [None]
